FAERS Safety Report 5237644-3 (Version None)
Quarter: 2007Q1

REPORT INFORMATION
  Report Type: 
  Country: None (occurrence: None)
  Receive Date: 20070214
  Receipt Date: 20070131
  Transmission Date: 20070707
  Serious: Yes (Other)
  Sender: FDA-Public Use
  Company Number: NSADSS2001026584

PATIENT
  Age: 36 Year
  Sex: Female

DRUGS (7)
  1. REMICADE [Suspect]
     Route: 041
     Dates: start: 20000401
  2. REMICADE [Suspect]
     Indication: RHEUMATOID ARTHRITIS
     Route: 041
     Dates: start: 20000401
  3. PREDNISONE [Concomitant]
  4. OXYCODONE [Concomitant]
  5. ATENOLOL [Concomitant]
  6. SIMVASTATIN [Concomitant]
  7. ASPIRIN [Concomitant]

REACTIONS (8)
  - ANTIBODY TEST POSITIVE [None]
  - ARTHRITIS [None]
  - HEADACHE [None]
  - HEPATITIS ACUTE [None]
  - HEPATOCELLULAR DAMAGE [None]
  - INFLUENZA LIKE ILLNESS [None]
  - LIVER DISORDER [None]
  - WEIGHT DECREASED [None]
